FAERS Safety Report 4426412-8 (Version None)
Quarter: 2004Q3

REPORT INFORMATION
  Report Type: 
  Country: None (occurrence: None)
  Receive Date: 20040811
  Receipt Date: 20040730
  Transmission Date: 20050211
  Serious: Yes (Hospitalization)
  Sender: FDA-Public Use
  Company Number: 2004226389BR

PATIENT
  Sex: Female

DRUGS (1)
  1. FARLUTAL(MEDROXYPROGESTERONE ACETATE) TABLET, 2.5-10MG [Suspect]
     Indication: UTERINE DISORDER
     Dosage: 25 MG, SINGLE, ORAL
     Route: 048
     Dates: start: 20040401, end: 20040401

REACTIONS (3)
  - ABORTION SPONTANEOUS [None]
  - DRUG EXPOSURE DURING PREGNANCY [None]
  - VAGINAL HAEMORRHAGE [None]
